FAERS Safety Report 8130950-4 (Version None)
Quarter: 2012Q1

REPORT INFORMATION
  Report Type: 
  Country: None (occurrence: None)
  Receive Date: 20120213
  Receipt Date: 20120202
  Transmission Date: 20120608
  Serious: Yes (Other)
  Sender: FDA-Public Use
  Company Number: US-PFIZER INC-2012033022

PATIENT
  Sex: Female

DRUGS (2)
  1. LO/OVRAL-28 [Suspect]
     Dosage: UNK
     Dates: start: 20111101
  2. LEXAPRO [Concomitant]
     Indication: DEPRESSION
     Dosage: UNK
     Dates: start: 20110901

REACTIONS (1)
  - VAGINAL HAEMORRHAGE [None]
